FAERS Safety Report 22284958 (Version 1)
Quarter: 2023Q2

REPORT INFORMATION
  Report Type: Spontaneous
  Country: US (occurrence: None)
  Receive Date: 20230503
  Receipt Date: 20230503
  Transmission Date: 20230722
  Serious: Yes (Life-Threatening)
  Sender: FDA-Public Use
  Company Number: None

PATIENT
  Age: 37 Year
  Sex: Male
  Weight: 101.25 kg

DRUGS (7)
  1. BUPRENORPHINE AND NALOXONE SUBLINGUAL FILM [Suspect]
     Active Substance: BUPRENORPHINE HYDROCHLORIDE\NALOXONE HYDROCHLORIDE
     Indication: Drug dependence
     Dosage: OTHER QUANTITY : 1 FILMS;?FREQUENCY : DAILY;?
     Route: 060
     Dates: start: 20230501, end: 20230503
  2. LISINOPRIL [Concomitant]
     Active Substance: LISINOPRIL
  3. GABAPENTIN [Concomitant]
     Active Substance: GABAPENTIN
  4. REMERON [Concomitant]
     Active Substance: MIRTAZAPINE
  5. B100 [Concomitant]
     Active Substance: CITRIC ACID MONOHYDRATE\SODIUM CHLORITE
  6. VITAMINS [Concomitant]
     Active Substance: VITAMINS
  7. MELATONIN [Concomitant]
     Active Substance: MELATONIN

REACTIONS (11)
  - Product substitution issue [None]
  - Brain fog [None]
  - Abdominal pain upper [None]
  - Hyperhidrosis [None]
  - Insomnia [None]
  - Anxiety [None]
  - Headache [None]
  - Product quality issue [None]
  - Pain [None]
  - Loss of personal independence in daily activities [None]
  - Drug dependence [None]

NARRATIVE: CASE EVENT DATE: 20230502
